FAERS Safety Report 26089024 (Version 1)
Quarter: 2025Q4

REPORT INFORMATION
  Report Type: Spontaneous
  Country: US (occurrence: US)
  Receive Date: 20251125
  Receipt Date: 20251125
  Transmission Date: 20260118
  Serious: No
  Sender: SANOFI AVENTIS
  Company Number: US-SA-2025SA352041

PATIENT
  Age: 10 Year
  Sex: Male

DRUGS (1)
  1. ALTUVIIIO [Suspect]
     Active Substance: EFANESOCTOCOG ALFA
     Indication: Factor VIII deficiency
     Dosage: 1050 IU, PRN
     Route: 042
     Dates: start: 2021

REACTIONS (1)
  - Fall [Unknown]

NARRATIVE: CASE EVENT DATE: 20251024
